FAERS Safety Report 24105425 (Version 4)
Quarter: 2024Q4

REPORT INFORMATION
  Report Type: Report from Study
  Country: US (occurrence: US)
  Receive Date: 20240717
  Receipt Date: 20241015
  Transmission Date: 20250115
  Serious: Yes (Other)
  Sender: ROCHE
  Company Number: US-ROCHE-10000006854

PATIENT
  Age: 55 Year
  Sex: Male
  Weight: 81.65 kg

DRUGS (2)
  1. XOLAIR [Suspect]
     Active Substance: OMALIZUMAB
     Indication: Chronic spontaneous urticaria
     Route: 065
     Dates: start: 2012, end: 2021
  2. XOLAIR [Suspect]
     Active Substance: OMALIZUMAB
     Route: 065
     Dates: start: 2021, end: 20240106

REACTIONS (15)
  - Anaphylactic shock [Unknown]
  - Urticaria [Not Recovered/Not Resolved]
  - Dyspnoea [Not Recovered/Not Resolved]
  - Asthma [Not Recovered/Not Resolved]
  - COVID-19 [Recovered/Resolved with Sequelae]
  - Arthropod bite [Recovered/Resolved]
  - Intervertebral disc protrusion [Unknown]
  - Sciatica [Unknown]
  - Weight decreased [Unknown]
  - Anxiety [Unknown]
  - Depression [Unknown]
  - Brain fog [Unknown]
  - Gastrointestinal disorder [Unknown]
  - Atrial fibrillation [Unknown]
  - Post-traumatic stress disorder [Unknown]
